FAERS Safety Report 16092736 (Version 5)
Quarter: 2022Q1

REPORT INFORMATION
  Report Type: Spontaneous
  Country: FR (occurrence: FR)
  Receive Date: 20190319
  Receipt Date: 20220123
  Transmission Date: 20220423
  Serious: Yes (Hospitalization, Other)
  Sender: FDA-Public Use
  Company Number: None

PATIENT
  Age: 4 Day
  Sex: Male
  Weight: 2.03 kg

DRUGS (25)
  1. DOXORUBICIN [Interacting]
     Active Substance: DOXORUBICIN
     Indication: Hodgkin^s disease
     Dosage: 48 MILLIGRAM ON DAY 1 AND DAY 15 OF A 28 DAY CYCLE
     Route: 064
  2. DOXORUBICIN [Interacting]
     Active Substance: DOXORUBICIN
     Dosage: 25 MILLIGRAM/SQ. METER
     Route: 064
     Dates: start: 20171108
  3. PREDNISONE [Interacting]
     Active Substance: PREDNISONE
     Indication: Product used for unknown indication
     Dosage: 40 MILLIGRAM, ONCE A DAY(FROM THE DIAGNOSIS UNTIL 1 WEEK AFTER THE FIRST ABVD)
     Route: 064
  4. BLEOMYCIN [Interacting]
     Active Substance: BLEOMYCIN SULFATE
     Indication: Hodgkin^s disease
     Dosage: 19.2 MILLIGRAM, ON DAY 1 AND DAY 15 OF A 28 DAY CYCLE
     Route: 064
  5. BLEOMYCIN [Interacting]
     Active Substance: BLEOMYCIN SULFATE
     Dosage: 10 MILLIGRAM/SQ. METER
     Route: 064
     Dates: start: 20171108
  6. CYCLOPHOSPHAMIDE [Interacting]
     Active Substance: CYCLOPHOSPHAMIDE
     Indication: Product used for unknown indication
     Dosage: UNK
     Route: 064
  7. DACARBAZINE [Interacting]
     Active Substance: DACARBAZINE
     Indication: Hodgkin^s disease
     Dosage: 730 MILLIGRAM   IN TOTAL ONCE AT DAY 15
     Route: 064
  8. DACARBAZINE [Interacting]
     Active Substance: DACARBAZINE
     Dosage: 730 MILLIGRAM, IN TOTAL ONCE AT DAY 1
     Route: 064
  9. DACARBAZINE [Interacting]
     Active Substance: DACARBAZINE
     Dosage: 375 MILLIGRAM/SQ. METER
     Route: 064
     Dates: start: 20171108
  10. ONDANSETRON [Interacting]
     Active Substance: ONDANSETRON
     Indication: Foetal exposure during pregnancy
     Dosage: 16 UNK, ONCE A DAY
     Route: 064
     Dates: start: 20171108
  11. ONDANSETRON [Interacting]
     Active Substance: ONDANSETRON
     Indication: Prophylaxis of nausea and vomiting
  12. RITUXIMAB [Interacting]
     Active Substance: RITUXIMAB
     Indication: Product used for unknown indication
     Dosage: UNK
     Route: 064
  13. VALACYCLOVIR HYDROCHLORIDE [Interacting]
     Active Substance: VALACYCLOVIR HYDROCHLORIDE
     Dosage: 500 MILLIGRAM, ONCE A DAY
     Route: 064
  14. VINBLASTINE [Interacting]
     Active Substance: VINBLASTINE
     Indication: Hodgkin^s disease
     Dosage: 10 MILLIGRAM,ON DAY 1 AND DAY 15 OF A 28 DAY CYCLE
     Route: 064
  15. VINBLASTINE [Interacting]
     Active Substance: VINBLASTINE
     Dosage: 5 MILLIGRAM/SQ. METER
     Route: 064
     Dates: start: 20171108
  16. LANSOPRAZOLE [Suspect]
     Active Substance: LANSOPRAZOLE
     Dosage: 30 MILLIGRAM, ONCE A DAY
     Route: 064
  17. DEXAMETHASONE [Suspect]
     Active Substance: DEXAMETHASONE
     Indication: Prophylaxis of nausea and vomiting
     Dosage: 10 MILLIGRAM
     Route: 064
     Dates: start: 20171108
  18. ENOXAPARIN [Suspect]
     Active Substance: ENOXAPARIN
     Indication: Product used for unknown indication
     Dosage: 4000 INTERNATIONAL UNIT, TWO TIMES A DAY
     Route: 064
  19. AMOXICILLIN [Suspect]
     Active Substance: AMOXICILLIN
     Dosage: UNK
     Route: 064
  20. CAFFEINE [Suspect]
     Active Substance: CAFFEINE
     Indication: Product used for unknown indication
     Dosage: UNK
     Route: 042
  21. SODIUM CHLORIDE [Suspect]
     Active Substance: SODIUM CHLORIDE
     Indication: Hodgkin^s disease
     Dosage: 20 MILLILITER (USED AS A VEHICLE FOR VINBLASTIN DRUG ADMINISTRATION)
     Route: 064
     Dates: start: 20171108
  22. SODIUM CHLORIDE [Suspect]
     Active Substance: SODIUM CHLORIDE
     Dosage: 20 MILLILITER (USED AS A VEHICLE FOR BLEOMYCIN DRUG ADMINISTRATION)
     Route: 064
     Dates: start: 20171108
  23. DEXTROSE [Suspect]
     Active Substance: DEXTROSE
     Indication: Hodgkin^s disease
     Dosage: 250 MILLILITER
     Route: 064
     Dates: start: 20171108
  24. DEXTROSE [Suspect]
     Active Substance: DEXTROSE
     Dosage: 250 MILLILITER (USED AS A VEHICLE FOR DACARBAZINE DRUG ADMINISTRATION)
     Route: 064
     Dates: start: 20171108
  25. DEXTROSE [Suspect]
     Active Substance: DEXTROSE
     Dosage: 20 MILLILITER (USED AS A VEHICLE FOR DOXORUBICIN DRUG ADMINISTRATION)
     Route: 064
     Dates: start: 20171108

REACTIONS (8)
  - Premature baby [Unknown]
  - Cardiac dysfunction [Recovered/Resolved]
  - Foetal exposure during pregnancy [Recovered/Resolved]
  - Drug interaction [Recovered/Resolved]
  - Cardiotoxicity [Recovered/Resolved]
  - Cardiomyopathy [Recovered/Resolved]
  - Troponin increased [Recovered/Resolved]
  - Off label use [Unknown]

NARRATIVE: CASE EVENT DATE: 20170101
